FAERS Safety Report 6968717-2 (Version None)
Quarter: 2010Q3

REPORT INFORMATION
  Report Type: 
  Country: None (occurrence: None)
  Receive Date: 20100907
  Receipt Date: 20100901
  Transmission Date: 20110219
  Serious: Yes (Hospitalization)
  Sender: FDA-Public Use
  Company Number: US-MERCK-1009USA00263

PATIENT

DRUGS (2)
  1. COZAAR [Suspect]
     Indication: BLOOD PRESSURE
     Route: 048
     Dates: start: 20100101
  2. COZAAR [Suspect]
     Route: 048
     Dates: end: 20100101

REACTIONS (3)
  - FLUSHING [None]
  - HYPERHIDROSIS [None]
  - HYPERTENSION [None]
